FAERS Safety Report 25287523 (Version 4)
Quarter: 2025Q4

REPORT INFORMATION
  Report Type: Report from Study
  Country: GB (occurrence: GB)
  Receive Date: 20250509
  Receipt Date: 20251015
  Transmission Date: 20260118
  Serious: Yes (Hospitalization, Other)
  Sender: NOVARTIS
  Company Number: GB-002147023-NVSC2025GB025109

PATIENT
  Sex: Male

DRUGS (4)
  1. SANDOSTATIN LAR DEPOT [Suspect]
     Active Substance: OCTREOTIDE ACETATE
     Indication: Product used for unknown indication
     Dosage: UNK
     Route: 030
  2. SANDOSTATIN LAR DEPOT [Suspect]
     Active Substance: OCTREOTIDE ACETATE
     Dosage: 30 MG, Q3W
     Route: 030
  3. SANDOSTATIN LAR DEPOT [Suspect]
     Active Substance: OCTREOTIDE ACETATE
  4. DEXAMETHASONE [Concomitant]
     Active Substance: DEXAMETHASONE
     Indication: Product used for unknown indication
     Dosage: 4 MG, BID
     Route: 065

REACTIONS (16)
  - Infection [Unknown]
  - Neoplasm malignant [Unknown]
  - C-reactive protein increased [Unknown]
  - Diarrhoea [Unknown]
  - Blood electrolytes abnormal [Unknown]
  - Tumour necrosis [Unknown]
  - Metastases to liver [Unknown]
  - Cyst [Unknown]
  - Condition aggravated [Unknown]
  - Energy increased [Unknown]
  - Asthenia [Unknown]
  - Weight decreased [Unknown]
  - Night sweats [Unknown]
  - Joint swelling [Unknown]
  - Off label use [Unknown]
  - Product dose omission issue [Unknown]
